FAERS Safety Report 10210212 (Version 1)
Quarter: 2014Q2

REPORT INFORMATION
  Report Type: Spontaneous
  Country: DE (occurrence: None)
  Receive Date: 20140528
  Receipt Date: 20140528
  Transmission Date: 20141212
  Serious: Yes (Other)
  Sender: FDA-Public Use
  Company Number: AUR-APL-2014-06088

PATIENT
  Sex: Male

DRUGS (2)
  1. SERTRALINE (SERTRALINE) [Suspect]
     Indication: BIPOLAR DISORDER
     Route: 064
     Dates: start: 20130304, end: 20130810
  2. SEROQUEL PROLONG (QUETIAPINE FUMARATE) [Suspect]
     Indication: BIPOLAR DISORDER
     Route: 064
     Dates: start: 20121213, end: 20130810

REACTIONS (9)
  - Foetal exposure during pregnancy [None]
  - Foetal death [None]
  - Stillbirth [None]
  - Placental disorder [None]
  - Placental infarction [None]
  - Placental insufficiency [None]
  - Foetal growth restriction [None]
  - Passive smoking [None]
  - Maternal drugs affecting foetus [None]
